FAERS Safety Report 24795039 (Version 1)
Quarter: 2024Q4

REPORT INFORMATION
  Report Type: Spontaneous
  Country: US (occurrence: None)
  Receive Date: 20241230
  Receipt Date: 20241230
  Transmission Date: 20250115
  Serious: Yes (Other)
  Sender: Public
  Company Number: None

PATIENT
  Age: 45 Year
  Sex: Female
  Weight: 109.53 kg

DRUGS (4)
  1. ZEPBOUND [Suspect]
     Active Substance: TIRZEPATIDE
     Indication: Weight decreased
     Dosage: OTHER QUANTITY : 1 INJECTION(S);?OTHER FREQUENCY : 1 PEN PER WEEK;?
     Route: 058
     Dates: start: 20241111
  2. COENZYME Q10 [Concomitant]
     Active Substance: DIETARY SUPPLEMENT\UBIDECARENONE
  3. MINERALS\VITAMINS [Concomitant]
     Active Substance: MINERALS\VITAMINS
  4. CALCIUM\VITAMIN D [Concomitant]
     Active Substance: CALCIUM\VITAMIN D

REACTIONS (9)
  - Polymenorrhoea [None]
  - Abdominal pain [None]
  - Haemorrhage [None]
  - Thrombosis [None]
  - Diarrhoea [None]
  - Condition aggravated [None]
  - Constipation [None]
  - Dyspepsia [None]
  - Therapeutic product effect decreased [None]

NARRATIVE: CASE EVENT DATE: 20241230
